FAERS Safety Report 25733531 (Version 2)
Quarter: 2025Q3

REPORT INFORMATION
  Report Type: Spontaneous
  Country: EU (occurrence: EU)
  Receive Date: 20250828
  Receipt Date: 20250828
  Transmission Date: 20251020
  Serious: Yes (Hospitalization, Other)
  Sender: BOEHRINGER INGELHEIM
  Company Number: EU-BoehringerIngelheim-2025-BI-085910

PATIENT
  Age: 82 Year
  Sex: Female
  Weight: 70 kg

DRUGS (9)
  1. OFEV [Suspect]
     Active Substance: NINTEDANIB
     Indication: Pulmonary fibrosis
     Dates: end: 20250702
  2. OFEV [Suspect]
     Active Substance: NINTEDANIB
     Indication: Connective tissue disease-associated interstitial lung disease
  3. Paspertin [Concomitant]
     Indication: Product used for unknown indication
     Dosage: IN THE MORNING AND AS NEEDED
  4. LOPERAMIDE HYDROCHLORIDE [Concomitant]
     Active Substance: LOPERAMIDE HYDROCHLORIDE
     Indication: Product used for unknown indication
     Dosage: IN THE MORNING AND AS NEEDED
  5. Spiono [Concomitant]
     Indication: Product used for unknown indication
  6. Rosuvastatin 1 A [Concomitant]
     Indication: Product used for unknown indication
     Dosage: 0-0-1-0?DAILY
  7. Candesartan 1 A [Concomitant]
     Indication: Product used for unknown indication
     Dosage: 1-0-0-0?DAILY
  8. ELIQUIS [Concomitant]
     Active Substance: APIXABAN
     Indication: Pulmonary embolism
     Dosage: PRESCRIBED DUE TO A PULMONARY EMBOLISM THAT OCCURRED SEVERAL YEARS AGO?1-0-1-0?DAILY
  9. Spirono Gen Tablets [Concomitant]
     Indication: Product used for unknown indication
     Dosage: 1-0-0-0?DAILY

REACTIONS (8)
  - Appendicitis perforated [Recovered/Resolved]
  - Peritonitis [Recovered/Resolved]
  - Appendicitis [Recovered/Resolved]
  - Weight decreased [Recovered/Resolved]
  - Nausea [Recovered/Resolved]
  - Vomiting [Recovered/Resolved]
  - Diarrhoea [Recovered/Resolved]
  - Post procedural haemorrhage [Recovered/Resolved]

NARRATIVE: CASE EVENT DATE: 20250201
